FAERS Safety Report 17366444 (Version 3)
Quarter: 2021Q1

REPORT INFORMATION
  Report Type: Spontaneous
  Country: US (occurrence: US)
  Receive Date: 20200204
  Receipt Date: 20210319
  Transmission Date: 20210419
  Serious: No
  Sender: FDA-Public Use
  Company Number: NVSC2020US027486

PATIENT
  Age: 57 Year
  Sex: Male

DRUGS (1)
  1. COSENTYX [Suspect]
     Active Substance: SECUKINUMAB
     Indication: PSORIASIS
     Dosage: 300 MG, QMO
     Route: 058
     Dates: start: 2017

REACTIONS (5)
  - Psoriasis [Unknown]
  - Anxiety [Unknown]
  - Product dose omission issue [Unknown]
  - Pruritus [Unknown]
  - Product supply issue [Unknown]

NARRATIVE: CASE EVENT DATE: 20200130
